FAERS Safety Report 4487316-8 (Version None)
Quarter: 2004Q4

REPORT INFORMATION
  Report Type: 
  Country: None (occurrence: None)
  Receive Date: 20041022
  Receipt Date: 20041006
  Transmission Date: 20050328
  Serious: Yes (Death)
  Sender: FDA-Public Use
  Company Number: 2004-BP-09341RO

PATIENT
  Age: 20 Year
  Sex: Male

DRUGS (2)
  1. ALPRAZOLAM [Suspect]
  2. METHADONE HCL  (METHADONE HYDROCHLORIDE) [Suspect]
     Dosage: 10MG TABLETS

REACTIONS (2)
  - DRUG TOXICITY [None]
  - MULTIPLE DRUG OVERDOSE [None]
